FAERS Safety Report 9003215 (Version 1)
Quarter: 2013Q1

REPORT INFORMATION
  Report Type: Spontaneous
  Country: US (occurrence: US)
  Receive Date: 20130108
  Receipt Date: 20130108
  Transmission Date: 20140127
  Serious: No
  Sender: FDA-Public Use
  Company Number: US-VERTEX PHARMACEUTICALS INC.-2013-000268

PATIENT
  Age: 63 Year
  Sex: Female

DRUGS (3)
  1. INCIVEK [Suspect]
     Indication: HEPATITIS C
     Route: 048
  2. RIBAVIRIN [Suspect]
     Indication: HEPATITIS C
     Dosage: UNK
     Route: 048
  3. PEGYLATED INTERFERON ALFA-2A [Suspect]
     Indication: HEPATITIS C

REACTIONS (4)
  - Pruritus [Unknown]
  - Rash [Recovered/Resolved]
  - Dysgeusia [Unknown]
  - Nausea [Unknown]
